FAERS Safety Report 16744540 (Version 1)
Quarter: 2019Q3

REPORT INFORMATION
  Report Type: Spontaneous
  Country: GB (occurrence: GB)
  Receive Date: 20190827
  Receipt Date: 20190827
  Transmission Date: 20191005
  Serious: Yes (Other)
  Sender: FDA-Public Use
  Company Number: GB-PFIZER INC-2019358079

PATIENT
  Sex: Male

DRUGS (2)
  1. TRASTUZUMAB. [Suspect]
     Active Substance: TRASTUZUMAB
     Dosage: UNK
     Route: 065
  2. PERTUZUMAB. [Suspect]
     Active Substance: PERTUZUMAB
     Dosage: UNK
     Route: 065

REACTIONS (2)
  - Urosepsis [Unknown]
  - Rectal cancer metastatic [Unknown]
